FAERS Safety Report 6723450-7 (Version None)
Quarter: 2010Q2

REPORT INFORMATION
  Report Type: 
  Country: None (occurrence: None)
  Receive Date: 20100513
  Receipt Date: 20100512
  Transmission Date: 20101027
  Serious: Yes (Death, Hospitalization, Other)
  Sender: FDA-Public Use
  Company Number: PHHY2010EC30572

PATIENT
  Age: 76 Year
  Sex: Male

DRUGS (2)
  1. STALEVO 100 [Suspect]
     Indication: PARKINSON'S DISEASE
     Dosage: UNK
     Route: 048
     Dates: start: 20060101, end: 20091125
  2. FLUTAMIDE [Concomitant]
     Dosage: 250 MG, UNK

REACTIONS (6)
  - CARDIAC FAILURE [None]
  - CATHETERISATION CARDIAC [None]
  - CHEST PAIN [None]
  - HYPERHIDROSIS [None]
  - SKIN DISCOLOURATION [None]
  - VOMITING [None]
